FAERS Safety Report 13221842 (Version 1)
Quarter: 2017Q1

REPORT INFORMATION
  Report Type: Report from Study
  Country: US (occurrence: US)
  Receive Date: 20170211
  Receipt Date: 20170211
  Transmission Date: 20170428
  Serious: Yes (Other)
  Sender: FDA-Public Use
  Company Number: US-AMGEN-USASL2017019538

PATIENT
  Age: 72 Year
  Sex: Female

DRUGS (1)
  1. REPATHA [Suspect]
     Active Substance: EVOLOCUMAB
     Indication: BLOOD CHOLESTEROL INCREASED
     Dosage: UNK UNK, Q2WK
     Route: 065
     Dates: end: 201612

REACTIONS (5)
  - Trigger finger [Unknown]
  - Pain [Unknown]
  - Joint range of motion decreased [Unknown]
  - Generalised oedema [Unknown]
  - Peripheral swelling [Unknown]
